FAERS Safety Report 11589802 (Version 1)
Quarter: 2015Q4

REPORT INFORMATION
  Report Type: Spontaneous
  Country: NG (occurrence: NG)
  Receive Date: 20151002
  Receipt Date: 20151002
  Transmission Date: 20160304
  Serious: Yes (Other)
  Sender: FDA-Public Use
  Company Number: NG-ROXANE LABORATORIES, INC.-2015-RO-01586RO

PATIENT
  Age: 13 Year
  Sex: Female

DRUGS (2)
  1. ANTITHYMOCYTE IMMUNOGLOBULIN [Concomitant]
     Active Substance: THYMOCYTE IMMUNE GLOBULIN NOS
     Route: 065
  2. MYCOPHENOLATE MOFETIL. [Suspect]
     Active Substance: MYCOPHENOLATE MOFETIL
     Indication: RENAL TRANSPLANT
     Route: 065

REACTIONS (4)
  - Microsporidia infection [Recovered/Resolved with Sequelae]
  - Urinary tract infection bacterial [Unknown]
  - Cytomegalovirus infection [Recovered/Resolved]
  - Histiocytosis haematophagic [Unknown]
